FAERS Safety Report 4294171-8 (Version None)
Quarter: 2004Q1

REPORT INFORMATION
  Report Type: 
  Country: None (occurrence: None)
  Receive Date: 20040211
  Receipt Date: 20040202
  Transmission Date: 20041129
  Serious: Yes (Other)
  Sender: FDA-Public Use
  Company Number: JP-JNJFOC-20031100027

PATIENT
  Age: 46 Year
  Sex: Female

DRUGS (13)
  1. REMICADE [Suspect]
     Indication: RHEUMATOID ARTHRITIS
     Dosage: 3 MG/KG, 1 IN 1 AS NECESSARY, INTRAVENOUS DRIP
     Route: 041
     Dates: start: 20030830, end: 20030830
  2. REMICADE [Suspect]
     Indication: RHEUMATOID ARTHRITIS
     Dosage: 3 MG/KG, 1 IN 1 AS NECESSARY, INTRAVENOUS DRIP
     Route: 041
     Dates: start: 20030913, end: 20030913
  3. PREDNISOLONE [Concomitant]
  4. METHOTREXATE [Concomitant]
  5. LOXONIN (LOXOPROFEN SODIUM) [Concomitant]
  6. METALCAPTASE (PENICILLAMINE) TABLETS [Concomitant]
  7. FOLIAMIN (FOLIC ACID) TABLETS [Concomitant]
  8. NEORAL [Concomitant]
  9. ONE ALPHA (ALFACALCIDOL) TABLETS [Concomitant]
  10. FAMOTIDINE [Concomitant]
  11. MARZULEN S (MARZULENE S) [Concomitant]
  12. PYDOXAL (PYRIDOXAL PHOSPHATE) TABLETS [Concomitant]
  13. URALYT (URALYT) TABLETS [Concomitant]

REACTIONS (5)
  - BLOOD ALKALINE PHOSPHATASE INCREASED [None]
  - CHRONIC SINUSITIS [None]
  - LYMPHOMA [None]
  - METASTASIS [None]
  - NASAL ABSCESS [None]
